FAERS Safety Report 23531125 (Version 1)
Quarter: 2024Q1

REPORT INFORMATION
  Report Type: Spontaneous
  Country: JP (occurrence: JP)
  Receive Date: 20240216
  Receipt Date: 20240216
  Transmission Date: 20240409
  Serious: Yes (Hospitalization, Other)
  Sender: FDA-Public Use
  Company Number: JP-BAUSCH-BL-2024-002590

PATIENT
  Age: 54 Year
  Sex: Male

DRUGS (1)
  1. BRODALUMAB [Suspect]
     Active Substance: BRODALUMAB
     Indication: Psoriasis
     Dosage: LUMICEF SUBCUTANEOUS INJECTION SYRINGE 210 (BRODALUMAB) INJECTION
     Route: 058

REACTIONS (1)
  - Alcoholism [Not Recovered/Not Resolved]
